FAERS Safety Report 5677828-3 (Version None)
Quarter: 2008Q1

REPORT INFORMATION
  Report Type: 
  Country: None (occurrence: None)
  Receive Date: 20080318
  Receipt Date: 20080304
  Transmission Date: 20080703
  Serious: Yes (Hospitalization)
  Sender: FDA-Public Use
  Company Number: 2007002549

PATIENT
  Age: 63 Year
  Sex: Male
  Weight: 66.7 kg

DRUGS (16)
  1. ERLOTINIB (ERLOTINIB) (ERLOTINIB) [Suspect]
     Indication: TONSIL CANCER
     Dosage: 150 MG
     Dates: start: 20070621, end: 20070830
  2. BEVACIZUMAB (INJECTION) [Suspect]
     Dosage: 15 MG/M2, INTRAVENOUS
     Route: 042
     Dates: start: 20070621, end: 20070911
  3. TAXOL [Suspect]
     Dosage: 200 MG/M2, INTRAVENOUS
     Route: 042
     Dates: start: 20070621, end: 20071004
  4. CARBOPLATIN [Suspect]
     Dosage: 5, INTRAVENOUS
     Route: 042
     Dates: start: 20070621, end: 20070717
  5. FLUOROURACIL INJ [Suspect]
     Dosage: 200 MG/M2, INTRA CORPUS CAVERNOSUM
     Route: 011
     Dates: start: 20070621, end: 20070807
  6. LORTAB [Concomitant]
  7. PLAVIX [Concomitant]
  8. INHALER [Concomitant]
  9. KLONOPIN [Concomitant]
  10. ZOCOR [Concomitant]
  11. FENTANYL [Concomitant]
  12. NYSTATIN [Concomitant]
  13. LASIX [Concomitant]
  14. COREG [Concomitant]
  15. VASOTEC [Concomitant]
  16. ALEVE [Concomitant]

REACTIONS (9)
  - AREFLEXIA [None]
  - ASPIRATION [None]
  - BRONCHIAL SECRETION RETENTION [None]
  - DYSPHAGIA [None]
  - EJECTION FRACTION DECREASED [None]
  - LARYNGITIS [None]
  - MUCOSAL INFLAMMATION [None]
  - PNEUMONIA [None]
  - SALIVA ALTERED [None]
